FAERS Safety Report 12468043 (Version 1)
Quarter: 2016Q2

REPORT INFORMATION
  Report Type: Spontaneous
  Country: US (occurrence: None)
  Receive Date: 20160614
  Receipt Date: 20160614
  Transmission Date: 20160815
  Serious: Yes (Hospitalization)
  Sender: FDA-Public Use
  Company Number: None

PATIENT
  Sex: Male
  Weight: 22.6 kg

DRUGS (1)
  1. ERWINIA [Suspect]
     Active Substance: ASPARAGINASE ERWINIA CHRYSANTHEMI
     Dates: end: 20160527

REACTIONS (13)
  - Erythema [None]
  - Heart rate increased [None]
  - Platelet count decreased [None]
  - Laboratory test interference [None]
  - Mucosal inflammation [None]
  - Diarrhoea [None]
  - Haematocrit decreased [None]
  - Pyrexia [None]
  - Asthenia [None]
  - Eating disorder [None]
  - Neutrophil count decreased [None]
  - Pain [None]
  - Haemoglobin decreased [None]
